FAERS Safety Report 7463779-0 (Version None)
Quarter: 2011Q2

REPORT INFORMATION
  Report Type: 
  Country: None (occurrence: None)
  Receive Date: 20110506
  Receipt Date: 20110425
  Transmission Date: 20111010
  Serious: Yes (Other)
  Sender: FDA-Public Use
  Company Number: ES-ELI_LILLY_AND_COMPANY-ES201104006952

PATIENT
  Sex: Male
  Weight: 87 kg

DRUGS (4)
  1. IDEOS [Concomitant]
     Indication: FRACTURE TREATMENT
     Dosage: UNK, QD
     Route: 048
  2. ENANTYUM [Concomitant]
     Indication: PAIN
     Dosage: UNK, PRN
     Route: 048
  3. NOLOTIL [Concomitant]
     Indication: PAIN
     Dosage: UNK, PRN
     Route: 048
  4. FORTEO [Suspect]
     Indication: FRACTURE TREATMENT
     Dosage: 20 UG, QD
     Route: 058
     Dates: start: 20100418

REACTIONS (2)
  - OFF LABEL USE [None]
  - FRACTURE NONUNION [None]
